FAERS Safety Report 23277779 (Version 1)
Quarter: 2023Q4

REPORT INFORMATION
  Report Type: Spontaneous
  Country: US (occurrence: None)
  Receive Date: 20231207
  Receipt Date: 20231207
  Transmission Date: 20240109
  Serious: Yes (Other)
  Sender: FDA-Public Use
  Company Number: None

PATIENT
  Age: 80 Year
  Sex: Female
  Weight: 66.64 kg

DRUGS (2)
  1. NALTREXONE [Suspect]
     Active Substance: NALTREXONE
     Indication: Alcoholism
     Dosage: FREQUENCY : DAILY;?
     Route: 048
  2. GUAIFENESIN [Concomitant]
     Active Substance: GUAIFENESIN

REACTIONS (1)
  - Headache [None]

NARRATIVE: CASE EVENT DATE: 20231011
